FAERS Safety Report 7675212-4 (Version None)
Quarter: 2011Q3

REPORT INFORMATION
  Report Type: 
  Country: None (occurrence: None)
  Receive Date: 20110810
  Receipt Date: 20110810
  Transmission Date: 20111222
  Serious: Yes (Other)
  Sender: FDA-Public Use
  Company Number: None

PATIENT
  Age: 45 Year
  Sex: Female
  Weight: 57.152 kg

DRUGS (1)
  1. NAPROXEN [Suspect]
     Indication: INFLAMMATION
     Dosage: 1TABLET TWICE A DAY WITH FOOD
     Route: 002
     Dates: start: 20110725, end: 20110801

REACTIONS (2)
  - ABDOMINAL DISTENSION [None]
  - OESOPHAGITIS [None]
